FAERS Safety Report 9433637 (Version 4)
Quarter: 2013Q4

REPORT INFORMATION
  Report Type: Spontaneous
  Country: IE (occurrence: IE)
  Receive Date: 20130731
  Receipt Date: 20131007
  Transmission Date: 20140711
  Serious: Yes (Congenital Anomaly, Other)
  Sender: FDA-Public Use
  Company Number: IE-TEVA-422308USA

PATIENT
  Age: 0 Year
  Sex: Female

DRUGS (2)
  1. PLAN B ONE-STEP [Suspect]
     Indication: PRODUCT USED FOR UNKNOWN INDICATION
     Dosage: 1.5 MILLIGRAM DAILY;
     Route: 064
     Dates: start: 20120423, end: 20120423
  2. YAZ [Suspect]
     Indication: PRODUCT USED FOR UNKNOWN INDICATION
     Route: 064

REACTIONS (3)
  - Syndactyly [Unknown]
  - Underweight [Unknown]
  - Foetal exposure during pregnancy [Unknown]
